FAERS Safety Report 17101207 (Version 2)
Quarter: 2019Q4

REPORT INFORMATION
  Report Type: Spontaneous
  Country: JP (occurrence: JP)
  Receive Date: 20191202
  Receipt Date: 20191205
  Transmission Date: 20200122
  Serious: Yes (Other)
  Sender: FDA-Public Use
  Company Number: JP-CELGENEUS-JPN-20191110697

PATIENT
  Age: 74 Year
  Sex: Female

DRUGS (2)
  1. ISTODAX [Suspect]
     Active Substance: ROMIDEPSIN
     Indication: ANGIOIMMUNOBLASTIC T-CELL LYMPHOMA
     Dosage: UNKNOWN
     Route: 041
  2. ISTODAX [Suspect]
     Active Substance: ROMIDEPSIN
     Dosage: UNKNOWN
     Route: 041

REACTIONS (1)
  - Sinus arrest [Unknown]
